FAERS Safety Report 9882108 (Version 1)
Quarter: 2014Q1

REPORT INFORMATION
  Report Type: Spontaneous
  Country: US (occurrence: None)
  Receive Date: 20140205
  Receipt Date: 20140205
  Transmission Date: 20141002
  Serious: Yes (Death)
  Sender: FDA-Public Use
  Company Number: 2014SA013995

PATIENT
  Age: 32 None
  Sex: Male

DRUGS (6)
  1. DILTIAZEM [Suspect]
     Indication: PRODUCT USED FOR UNKNOWN INDICATION
     Route: 048
  2. DIPHENHYDRAMINE [Suspect]
     Indication: PRODUCT USED FOR UNKNOWN INDICATION
     Route: 048
  3. ALPAZOLAM [Suspect]
     Indication: PRODUCT USED FOR UNKNOWN INDICATION
     Route: 048
  4. COCAINE [Suspect]
     Indication: PRODUCT USED FOR UNKNOWN INDICATION
     Route: 048
  5. HEROIN [Suspect]
     Indication: PRODUCT USED FOR UNKNOWN INDICATION
     Route: 048
  6. ETHANOL [Suspect]
     Indication: PRODUCT USED FOR UNKNOWN INDICATION
     Route: 048

REACTIONS (3)
  - Poisoning [None]
  - Drug abuse [None]
  - Exposure via ingestion [None]
